FAERS Safety Report 4501792-3 (Version None)
Quarter: 2004Q4

REPORT INFORMATION
  Report Type: 
  Country: None (occurrence: None)
  Receive Date: 20041109
  Receipt Date: 20041101
  Transmission Date: 20050328
  Serious: Yes (Hospitalization)
  Sender: FDA-Public Use
  Company Number: 200412925GDS

PATIENT
  Age: 83 Year
  Sex: Male

DRUGS (1)
  1. ASPIRIN [Suspect]
     Dosage: 100 MG, TOTAL DAILY, ORAL
     Route: 048
     Dates: end: 20041004

REACTIONS (11)
  - ASPIRATION BRONCHIAL [None]
  - ATRIOVENTRICULAR BLOCK SECOND DEGREE [None]
  - BRADYCARDIA [None]
  - CEREBRAL HAEMORRHAGE [None]
  - CHEST X-RAY ABNORMAL [None]
  - DISEASE PROGRESSION [None]
  - HAEMORRHAGIC TRANSFORMATION STROKE [None]
  - HYPERTENSION [None]
  - ISCHAEMIC STROKE [None]
  - OESOPHAGEAL CARCINOMA [None]
  - RENAL FAILURE [None]
